FAERS Safety Report 12269111 (Version 4)
Quarter: 2016Q2

REPORT INFORMATION
  Report Type: Report from Study
  Country: BR (occurrence: BR)
  Receive Date: 20160414
  Receipt Date: 20160509
  Transmission Date: 20160815
  Serious: Yes (Death, Hospitalization)
  Sender: FDA-Public Use
  Company Number: PHHY2016BR048511

PATIENT
  Sex: Female
  Weight: 60 kg

DRUGS (3)
  1. AFINITOR [Suspect]
     Active Substance: EVEROLIMUS
     Indication: BREAST CANCER METASTATIC
     Dosage: 10 MG, QD
     Route: 048
     Dates: start: 201602
  2. ZOMETA [Suspect]
     Active Substance: ZOLEDRONIC ACID
     Indication: BREAST CANCER METASTATIC
     Dosage: 1 DF, Q3MO
     Route: 065
     Dates: start: 201602
  3. AROMASIN [Suspect]
     Active Substance: EXEMESTANE
     Indication: BREAST CANCER METASTATIC
     Dosage: 1 DF, QD
     Route: 048
     Dates: start: 201602

REACTIONS (7)
  - Stomatitis [Recovering/Resolving]
  - Breast cancer [Fatal]
  - Septic shock [Fatal]
  - Pneumonia [Not Recovered/Not Resolved]
  - Rash [Unknown]
  - Pulmonary fibrosis [Fatal]
  - Dyspnoea [Not Recovered/Not Resolved]
